FAERS Safety Report 4355408-X (Version None)
Quarter: 2004Q2

REPORT INFORMATION
  Report Type: 
  Country: None (occurrence: None)
  Receive Date: 20040504
  Receipt Date: 20040421
  Transmission Date: 20050107
  Serious: Yes (Death)
  Sender: FDA-Public Use
  Company Number: WAES 0404USA02005

PATIENT

DRUGS (3)
  1. COSMEGEN [Suspect]
     Indication: RHABDOMYOSARCOMA
     Dosage: 1.5 MG/M[2]/IV
     Route: 042
  2. CYCLOPHOSPHAMIDE [Suspect]
     Indication: RHABDOMYOSARCOMA
     Dosage: 0.0022 MG/M[2]/IV
     Route: 042
  3. VINCRISTINE SULFATE [Suspect]
     Indication: RHABDOMYOSARCOMA
     Dosage: 1.5 MG/M[2]/IV
     Route: 042

REACTIONS (1)
  - ENTEROCOCCAL SEPSIS [None]
